FAERS Safety Report 10992992 (Version 2)
Quarter: 2015Q2

REPORT INFORMATION
  Report Type: Other
  Country: GB (occurrence: GB)
  Receive Date: 20150406
  Receipt Date: 20150428
  Transmission Date: 20150821
  Serious: Yes (Other)
  Sender: FDA-Public Use
  Company Number: GB-MYLANLABS-2015M1010013

PATIENT

DRUGS (3)
  1. BISOPROLOL [Suspect]
     Active Substance: BISOPROLOL
     Dosage: UNK
     Route: 065
  2. BENDROFLUMETHIAZIDE [Concomitant]
     Active Substance: BENDROFLUMETHIAZIDE
     Dosage: UNK
     Route: 065
  3. METFORMIN [Suspect]
     Active Substance: METFORMIN HYDROCHLORIDE
     Dosage: UNK
     Route: 065
     Dates: start: 2014, end: 201412

REACTIONS (7)
  - Alopecia [Not Recovered/Not Resolved]
  - Type 2 diabetes mellitus [Unknown]
  - Rhinorrhoea [Unknown]
  - Arthralgia [Unknown]
  - Sneezing [Unknown]
  - Hypoaesthesia [Unknown]
  - Headache [Unknown]

NARRATIVE: CASE EVENT DATE: 2014
